FAERS Safety Report 9820388 (Version 1)
Quarter: 2013Q4

REPORT INFORMATION
  Report Type: Spontaneous
  Country: US (occurrence: None)
  Receive Date: 20131028
  Receipt Date: 20131028
  Transmission Date: 20140711
  Serious: No
  Sender: FDA-Public Use
  Company Number: SYM-2013-02224

PATIENT
  Sex: Male

DRUGS (1)
  1. WELLBUTRIN SR (BUPROPION HYDROCHLORIDE) (TABLETS) (BUPROPION HYDROCHLORIDE) [Suspect]
     Indication: PRODUCT USED FOR UNKNOWN INDICATION
     Route: 048

REACTIONS (1)
  - Convulsion [None]
